FAERS Safety Report 7270380-0 (Version None)
Quarter: 2011Q1

REPORT INFORMATION
  Report Type: 
  Country: None (occurrence: None)
  Receive Date: 20110202
  Receipt Date: 20101217
  Transmission Date: 20110831
  Serious: Yes (Other)
  Sender: FDA-Public Use
  Company Number: US-BAYER-201013357NA

PATIENT
  Sex: Female
  Weight: 73 kg

DRUGS (38)
  1. YASMIN [Suspect]
     Indication: MENOPAUSE
  2. LEVAQUIN [Concomitant]
  3. ALBUTEROL [Concomitant]
     Indication: ASTHMA
     Dates: start: 19900101
  4. ESTER C [Concomitant]
  5. YAZ [Suspect]
     Indication: MENOPAUSE
  6. MAGNESIUM [Concomitant]
  7. LOVAZA [Concomitant]
  8. TPN [Concomitant]
  9. LIPITAC [Concomitant]
  10. UNCODEABLE ^UNCLASSIFIABLE^ [Concomitant]
     Indication: PRODUCT USED FOR UNKNOWN INDICATION
  11. MOTRIN [Concomitant]
     Indication: MIGRAINE
     Dates: start: 20080101
  12. TEMAZEPAM [Concomitant]
     Indication: ASTHMA
  13. AMBIEN [Concomitant]
     Indication: SLEEP DISORDER
     Dates: start: 20080101
  14. ZYRTEC [Concomitant]
     Indication: SLEEP DISORDER
     Dates: start: 20080101
  15. EVENING PRIMROSE OIL [Concomitant]
  16. ZYRTEC [Concomitant]
     Indication: HYPERSENSITIVITY
  17. YASMIN [Suspect]
     Indication: PREMENSTRUAL SYNDROME
     Route: 048
     Dates: start: 20030514, end: 20061001
  18. YAZ [Suspect]
     Indication: PREMENSTRUAL SYNDROME
     Route: 048
     Dates: start: 20061101, end: 20080401
  19. ADVAIR [Concomitant]
     Indication: ASTHMA
     Dates: start: 19900101
  20. PLAQUENIL [Concomitant]
     Indication: SYSTEMIC LUPUS ERYTHEMATOSUS
     Dates: start: 20060101
  21. MERIDIA [Concomitant]
     Indication: WEIGHT DECREASED
     Dates: start: 20030327, end: 20090504
  22. LORATADINE [Concomitant]
     Indication: SEASONAL ALLERGY
     Dates: start: 20000101, end: 20000101
  23. IRON [Concomitant]
  24. WOMENS ULTRA MEGA [Concomitant]
  25. CHROMIUM CHLORIDE [Concomitant]
  26. ZINC [Concomitant]
  27. FLAXSEED OIL [Concomitant]
  28. IBUPROFEN [Concomitant]
     Indication: MIGRAINE
     Dates: start: 20080101
  29. SINGULAIR [Concomitant]
     Indication: ASTHMA
     Dates: start: 19900101
  30. AMITRIPTYLINE HCL [Concomitant]
     Indication: SLEEP DISORDER
     Dates: start: 20080101
  31. VITAMIN D [Concomitant]
  32. PHENTERMINE [Concomitant]
     Indication: WEIGHT DECREASED
     Dates: start: 20090101
  33. LUNESTA [Concomitant]
     Indication: SLEEP DISORDER
     Dates: start: 20080101
  34. CALCIUM [Concomitant]
  35. COENZYME Q10 [Concomitant]
  36. FLONASE [Concomitant]
     Indication: HYPERSENSITIVITY
  37. ROZEREM [Concomitant]
     Indication: MYOCARDIAL ISCHAEMIA
     Dates: start: 20080101
  38. CLARINEX [Concomitant]
     Indication: HYPERSENSITIVITY

REACTIONS (6)
  - HEADACHE [None]
  - CEREBROVASCULAR ACCIDENT [None]
  - MUSCULAR WEAKNESS [None]
  - HEMICEPHALALGIA [None]
  - ABDOMINAL DISTENSION [None]
  - LISTLESS [None]
